FAERS Safety Report 8236892-8 (Version None)
Quarter: 2012Q1

REPORT INFORMATION
  Report Type: 
  Country: None (occurrence: None)
  Receive Date: 20120327
  Receipt Date: 20110719
  Transmission Date: 20120608
  Serious: No
  Sender: FDA-Public Use
  Company Number: US-GLAXOSMITHKLINE-A0937356A

PATIENT
  Sex: Female

DRUGS (2)
  1. NO CONCURRENT MEDICATION [Concomitant]
  2. LUXIQ [Suspect]
     Indication: ECZEMA
     Route: 061
     Dates: start: 20110719

REACTIONS (2)
  - MEDICATION ERROR [None]
  - OCULAR HYPERAEMIA [None]
